FAERS Safety Report 5062652-5 (Version None)
Quarter: 2006Q3

REPORT INFORMATION
  Report Type: 
  Country: None (occurrence: None)
  Receive Date: 20060724
  Receipt Date: 20060724
  Transmission Date: 20061208
  Serious: Yes (Other)
  Sender: FDA-Public Use
  Company Number: None

PATIENT
  Age: 41 Year
  Sex: Female
  Weight: 70.3075 kg

DRUGS (3)
  1. BUPROPION HCL [Suspect]
     Indication: ANXIETY
     Dosage: 150 MG TWICE DAILY / Q 12H PO
     Route: 048
     Dates: start: 20060707, end: 20060720
  2. BUPROPION HCL [Suspect]
     Indication: DEATH OF RELATIVE
     Dosage: 150 MG TWICE DAILY / Q 12H PO
     Route: 048
     Dates: start: 20060707, end: 20060720
  3. BUPROPION HCL [Suspect]
     Indication: DEPRESSION
     Dosage: 150 MG TWICE DAILY / Q 12H PO
     Route: 048
     Dates: start: 20060707, end: 20060720

REACTIONS (10)
  - COGNITIVE DISORDER [None]
  - CONFUSIONAL STATE [None]
  - EXTRASYSTOLES [None]
  - HEADACHE [None]
  - INFLUENZA [None]
  - MALAISE [None]
  - PHARMACEUTICAL PRODUCT COUNTERFEIT [None]
  - POOR QUALITY DRUG ADMINISTERED [None]
  - THINKING ABNORMAL [None]
  - VOMITING [None]
